FAERS Safety Report 23861296 (Version 1)
Quarter: 2024Q2

REPORT INFORMATION
  Report Type: Spontaneous
  Country: MA (occurrence: MA)
  Receive Date: 20240516
  Receipt Date: 20240516
  Transmission Date: 20240717
  Serious: Yes (Hospitalization)
  Sender: FDA-Public Use
  Company Number: MA-STRIDES ARCOLAB LIMITED-2024SP005706

PATIENT
  Age: 39 Year
  Sex: Male

DRUGS (3)
  1. HALOPERIDOL [Suspect]
     Active Substance: HALOPERIDOL
     Indication: Schizophrenia
     Dosage: 2 MILLIGRAM PER MILLILITRE, QD (DOSE - 2?MG/ML 5?GOUTTES/DAY)
     Route: 065
     Dates: start: 2002
  2. OLANZAPINE [Suspect]
     Active Substance: OLANZAPINE
     Indication: Schizophrenia
     Dosage: 5 MILLIGRAM, QD
     Route: 065
     Dates: start: 2002
  3. LEVOMEPROMAZINE [Suspect]
     Active Substance: LEVOMEPROMAZINE
     Indication: Schizophrenia
     Dosage: 25 MILLIGRAM, QD (DOSE - 25MG 1/4 CP/DAY)
     Route: 065
     Dates: start: 2002

REACTIONS (1)
  - Pulmonary embolism [Recovered/Resolved]
